FAERS Safety Report 24613059 (Version 1)
Quarter: 2024Q4

REPORT INFORMATION
  Report Type: Spontaneous
  Country: CN (occurrence: CN)
  Receive Date: 20241113
  Receipt Date: 20241113
  Transmission Date: 20250115
  Serious: Yes (Other)
  Sender: NOVARTIS
  Company Number: CN-SANDOZ-SDZ2024CN092439

PATIENT

DRUGS (5)
  1. BISOPROLOL FUMARATE [Suspect]
     Active Substance: BISOPROLOL FUMARATE
     Indication: Cardiac failure
     Dosage: 5MG?18S), 1.25MG/TIME, ONCE/DAY
     Route: 048
  2. VALSARTAN [Suspect]
     Active Substance: VALSARTAN
     Indication: Cardiac failure
     Dosage: 40MG?30S, 20MG/TIME
     Route: 048
  3. FUROSEMIDE [Suspect]
     Active Substance: FUROSEMIDE
     Indication: Cardiac failure
     Dosage: (SPECIFICATION 20MG?100S), 20MG/TIME, ONCE/DAY
     Route: 048
  4. SPIRONOLACTONE [Suspect]
     Active Substance: SPIRONOLACTONE
     Indication: Cardiac failure
     Dosage: (SPECIFICATION 20MG?100S), 10MG/TIME, ONCE/DAY,
     Route: 065
  5. DIGOXIN [Suspect]
     Active Substance: DIGOXIN
     Indication: Cardiac failure
     Dosage: (SPECIFICATION 0.25MG?30S), 0.125MG/TIME, ONCE/DAY FOR 12 WEEKS.
     Route: 048

REACTIONS (8)
  - Liver function test abnormal [Unknown]
  - Renal impairment [Unknown]
  - Arrhythmia [Unknown]
  - Hypokalaemia [Unknown]
  - Blood pressure decreased [Unknown]
  - Nausea [Unknown]
  - Vomiting [Unknown]
  - Pruritus [Unknown]
